FAERS Safety Report 7117110-0 (Version None)
Quarter: 2010Q4

REPORT INFORMATION
  Report Type: 
  Country: None (occurrence: None)
  Receive Date: 20101122
  Receipt Date: 20101118
  Transmission Date: 20110411
  Serious: Yes (Other)
  Sender: FDA-Public Use
  Company Number: US-PFIZER INC-2010152897

PATIENT
  Sex: Female
  Weight: 63.492 kg

DRUGS (10)
  1. TIKOSYN [Suspect]
     Indication: ATRIAL TACHYCARDIA
     Dosage: 250 UG, 2X/DAY
     Route: 048
     Dates: start: 20050901
  2. TIKOSYN [Suspect]
     Dosage: 125 UG, 2X/DAY
     Route: 048
     Dates: start: 20060701
  3. ASPIRIN [Concomitant]
     Dosage: 81 MG, UNK
  4. DIOVAN [Concomitant]
     Dosage: 40 MG, UNK
  5. FEMARA [Concomitant]
     Dosage: 2.5 MG, UNK
  6. FUROSEMIDE [Concomitant]
     Dosage: 10 MG, UNK
  7. LIPITOR [Concomitant]
     Dosage: 80 MG, UNK
  8. LOVAZA [Concomitant]
     Dosage: UNK
  9. OMEPRAZOLE [Concomitant]
     Dosage: 20 MG, UNK
  10. METOPROLOL [Concomitant]
     Indication: ATRIAL TACHYCARDIA
     Dosage: UNK

REACTIONS (2)
  - FOOT OPERATION [None]
  - INFECTION [None]
